FAERS Safety Report 25379348 (Version 1)
Quarter: 2025Q2

REPORT INFORMATION
  Report Type: Spontaneous
  Country: FR (occurrence: FR)
  Receive Date: 20250530
  Receipt Date: 20250530
  Transmission Date: 20250717
  Serious: Yes (Other)
  Sender: MERCK SHARP & DOHME LLC
  Company Number: FR-009507513-1482824

PATIENT
  Age: 72 Year
  Sex: Male

DRUGS (2)
  1. TEMOZOLOMIDE [Suspect]
     Active Substance: TEMOZOLOMIDE
     Indication: Medullary thyroid cancer
     Dosage: DOSE DESCRIPTION : 200 MILLIGRAM PER AQUARE METER (MG/M2)  DAY (QD), 5 DAYS 13 CYCLES
     Route: 048
  2. CAPECITABINE [Concomitant]
     Active Substance: CAPECITABINE
     Dosage: DOSE DESCRIPTION : 750MG/M2 BID, 14 DAYS, 28 DAYS CYCLE

REACTIONS (2)
  - Drug resistance [Unknown]
  - Product use in unapproved indication [Unknown]
